FAERS Safety Report 7077495-0 (Version None)
Quarter: 2010Q4

REPORT INFORMATION
  Report Type: 
  Country: None (occurrence: None)
  Receive Date: 20101101
  Receipt Date: 20101027
  Transmission Date: 20110411
  Serious: No
  Sender: FDA-Public Use
  Company Number: US-TEVA-253286USA

PATIENT
  Sex: Male
  Weight: 149.82 kg

DRUGS (2)
  1. ALBUTEROL SULFATE AUTOHALER [Suspect]
     Dosage: 2 PUFFS EVERY 6 HOURS
     Route: 055
     Dates: start: 20101024
  2. LISINOPRIL [Concomitant]

REACTIONS (1)
  - MUSCLE SPASMS [None]
